FAERS Safety Report 9820412 (Version 1)
Quarter: 2013Q4

REPORT INFORMATION
  Report Type: Spontaneous
  Country: US (occurrence: None)
  Receive Date: 20131028
  Receipt Date: 20131028
  Transmission Date: 20140711
  Serious: Yes (Other)
  Sender: FDA-Public Use
  Company Number: 2013US001565

PATIENT
  Age: 64 Year
  Sex: Male
  Weight: 88 kg

DRUGS (9)
  1. ICLUSIG [Suspect]
     Indication: CHRONIC MYELOID LEUKAEMIA
     Route: 048
     Dates: start: 20130429
  2. METOLAZONE (METOLAZONE) [Concomitant]
  3. CRESTOR (ROSUVASTATIN CALCIUM) [Concomitant]
  4. FENTANYL (FENTANYL) [Concomitant]
  5. LASIX (FUROSEMIDE) [Concomitant]
  6. OXYCONTIN (OXYCODONE HYDROCHLORIDE) [Concomitant]
  7. COZAAR (LOSARTAN POTASSIUM) [Concomitant]
  8. CYMBALTA (DULOXETINE HYDROCHLORIDE) [Concomitant]
  9. OXYCODONE (OXYCODONE) [Concomitant]

REACTIONS (3)
  - Pyrexia [None]
  - Tremor [None]
  - Headache [None]
